FAERS Safety Report 5245331-0 (Version None)
Quarter: 2007Q1

REPORT INFORMATION
  Report Type: 
  Country: None (occurrence: None)
  Receive Date: 20070223
  Receipt Date: 20070214
  Transmission Date: 20070707
  Serious: Yes (Other)
  Sender: FDA-Public Use
  Company Number: ES-AMGEN-UK209698

PATIENT
  Age: 53 Year
  Sex: Male

DRUGS (4)
  1. MIMPARA [Suspect]
     Route: 065
     Dates: start: 20060601
  2. RENAGEL [Concomitant]
     Dates: start: 20060201, end: 20060727
  3. CALCIUM [Concomitant]
     Dates: start: 20061003
  4. VITAMIN D [Concomitant]
     Dates: start: 20070206

REACTIONS (3)
  - BLOOD CALCIUM DECREASED [None]
  - HYPOPHOSPHATAEMIA [None]
  - TREATMENT NONCOMPLIANCE [None]
